FAERS Safety Report 11090771 (Version 1)
Quarter: 2015Q2

REPORT INFORMATION
  Report Type: Spontaneous
  Country: US (occurrence: None)
  Receive Date: 20150504
  Receipt Date: 20150504
  Transmission Date: 20150821
  Serious: Yes (Hospitalization)
  Sender: FDA-Public Use
  Company Number: None

PATIENT
  Age: 23 Year
  Sex: Female
  Weight: 60.33 kg

DRUGS (5)
  1. DOXYCYCLINE. [Suspect]
     Active Substance: DOXYCYCLINE
     Indication: VAGINAL INFECTION
     Dosage: 1
  2. MUTI VITAMIN [Concomitant]
  3. METOCLOPRAMIDE. [Concomitant]
     Active Substance: METOCLOPRAMIDE
  4. METRONIDAZOLE. [Concomitant]
     Active Substance: METRONIDAZOLE
  5. ACETAMINOPHEN COD [Concomitant]

REACTIONS (7)
  - Enterocolitis haemorrhagic [None]
  - Muscle spasms [None]
  - Faeces discoloured [None]
  - Panic reaction [None]
  - Diarrhoea [None]
  - Feeling abnormal [None]
  - Clostridium difficile colitis [None]

NARRATIVE: CASE EVENT DATE: 20150501
